FAERS Safety Report 12080863 (Version 1)
Quarter: 2016Q1

REPORT INFORMATION
  Report Type: Spontaneous
  Country: US (occurrence: US)
  Receive Date: 20160216
  Receipt Date: 20160216
  Transmission Date: 20160526
  Serious: Yes (Other)
  Sender: FDA-Public Use
  Company Number: PHHY2015US174416

PATIENT
  Sex: Female
  Weight: 3.28 kg

DRUGS (4)
  1. NITRIC OXIDE. [Concomitant]
     Active Substance: NITRIC OXIDE
     Indication: HYPOXIA
     Route: 065
  2. OCTREOTIDE. [Suspect]
     Active Substance: OCTREOTIDE
     Indication: CHYLOTHORAX
     Dosage: 20 UG/KG, QH
     Route: 065
  3. IMMUNOGLOBULIN I.V [Concomitant]
     Active Substance: HUMAN IMMUNOGLOBULIN G
     Indication: HYPOGAMMAGLOBULINAEMIA
     Route: 042
  4. OCTREOTIDE. [Suspect]
     Active Substance: OCTREOTIDE
     Indication: PULMONARY LYMPHANGIECTASIA

REACTIONS (3)
  - Condition aggravated [Unknown]
  - Product use issue [Unknown]
  - Chylothorax [Recovered/Resolved]
